FAERS Safety Report 6078831-4 (Version None)
Quarter: 2009Q1

REPORT INFORMATION
  Report Type: 
  Country: None (occurrence: None)
  Receive Date: 20090216
  Receipt Date: 20090206
  Transmission Date: 20090719
  Serious: Yes (Hospitalization)
  Sender: FDA-Public Use
  Company Number: US-BAYER-200839141NA

PATIENT
  Age: 52 Year
  Sex: Female

DRUGS (10)
  1. AVELOX [Suspect]
     Indication: CHRONIC OBSTRUCTIVE PULMONARY DISEASE
  2. ZOSYN [Concomitant]
     Route: 042
  3. NICODERM [Concomitant]
     Route: 061
  4. ADVAIR DISKUS 100/50 [Concomitant]
  5. PLAVIX [Concomitant]
  6. ALBUTEROL [Concomitant]
  7. BENICAR [Concomitant]
  8. INDERAL [Concomitant]
  9. SPIRIVA [Concomitant]
  10. SOLU-MEDROL [Concomitant]
     Route: 042

REACTIONS (6)
  - CHRONIC OBSTRUCTIVE PULMONARY DISEASE [None]
  - DYSPNOEA [None]
  - HEPATOTOXICITY [None]
  - JAUNDICE [None]
  - PANCREATITIS ACUTE [None]
  - SPUTUM DISCOLOURED [None]
